FAERS Safety Report 8939858 (Version 1)
Quarter: 2012Q4

REPORT INFORMATION
  Report Type: 
  Country: US (occurrence: US)
  Receive Date: 20121203
  Receipt Date: 20121203
  Transmission Date: 20130627
  Serious: No
  Sender: FDA-Public Use
  Company Number: US-BAYER-2012-118029

PATIENT
  Sex: Female

DRUGS (1)
  1. BETASERON [Suspect]
     Indication: MS
     Route: 058

REACTIONS (1)
  - Influenza like illness [None]
